FAERS Safety Report 4852558-6 (Version None)
Quarter: 2005Q4

REPORT INFORMATION
  Report Type: 
  Country: None (occurrence: None)
  Receive Date: 20051123
  Receipt Date: 20050524
  Transmission Date: 20060501
  Serious: Yes (Hospitalization)
  Sender: FDA-Public Use
  Company Number: 05SPA0122

PATIENT
  Age: 68 Year
  Sex: Female

DRUGS (7)
  1. GLIADEL [Suspect]
     Indication: GLIOBLASTOMA MULTIFORME
     Dosage: 6 WAFERS IMPLANTATION
     Dates: start: 20030611
  2. PHENYTOIN (PHENYTOIN) (TABLETS) [Concomitant]
  3. AMILORIDE (AMILORIDE) (TABLETS) [Concomitant]
  4. HYDROCHLOROTHIAZIDE (HYDROCHLOROTHIAZIDE) (TABLETS) [Concomitant]
  5. VERAPAMIL (VERAPAMIL) (TABLETS) [Concomitant]
  6. LORAZEPAM (LORAZEPAM) (TABLETS) [Concomitant]
  7. OMEPRAZOLE (OMEPRAZOLE) (TABLETS) [Concomitant]

REACTIONS (6)
  - BRAIN OEDEMA [None]
  - BRAIN SCAN ABNORMAL [None]
  - DYSPHASIA [None]
  - ENCEPHALOPATHY [None]
  - HEMIPARESIS [None]
  - PNEUMOCEPHALUS [None]
